FAERS Safety Report 17388396 (Version 2)
Quarter: 2020Q1

REPORT INFORMATION
  Report Type: Report from Study
  Country: BR (occurrence: BR)
  Receive Date: 20200207
  Receipt Date: 20200213
  Transmission Date: 20200409
  Serious: Yes (Hospitalization, Other)
  Sender: FDA-Public Use
  Company Number: BR-AMGEN-BRASP2020018109

PATIENT
  Age: 62 Year
  Sex: Female
  Weight: 46 kg

DRUGS (5)
  1. PROLIA [Suspect]
     Active Substance: DENOSUMAB
     Indication: OSTEOPOROSIS
     Dosage: UNK
     Route: 065
     Dates: start: 20181214
  2. BENICAR [Concomitant]
     Active Substance: OLMESARTAN MEDOXOMIL
     Indication: ARRHYTHMIA
     Dosage: 20 MILLIGRAM
  3. AMIODARONE [Concomitant]
     Active Substance: AMIODARONE
     Dosage: 100 MILLIGRAM
  4. PURAN [Concomitant]
     Active Substance: LEVOTHYROXINE SODIUM
     Indication: THYROID DISORDER
     Dosage: 50 MILLIGRAM
  5. LEFLUNOMIDE. [Concomitant]
     Active Substance: LEFLUNOMIDE
     Indication: ARTHRITIS
     Dosage: 20 MILLIGRAM

REACTIONS (6)
  - Arrhythmia [Not Recovered/Not Resolved]
  - Rheumatoid arthritis [Unknown]
  - Glaucoma [Not Recovered/Not Resolved]
  - Influenza [Unknown]
  - Allergic respiratory symptom [Unknown]
  - Coeliac disease [Not Recovered/Not Resolved]

NARRATIVE: CASE EVENT DATE: 2019
